FAERS Safety Report 25208158 (Version 1)
Quarter: 2025Q2

REPORT INFORMATION
  Report Type: Spontaneous
  Country: RU (occurrence: RU)
  Receive Date: 20250417
  Receipt Date: 20250417
  Transmission Date: 20250717
  Serious: Yes (Other)
  Sender: AMGEN
  Company Number: RU-AMGEN-RUSSP2025071280

PATIENT
  Age: 5 Month
  Weight: 9.58 kg

DRUGS (17)
  1. ROMIPLOSTIM [Suspect]
     Active Substance: ROMIPLOSTIM
     Indication: Thrombocytopenia
     Route: 065
  2. Immunoglobulin [Concomitant]
  3. HUMAN CYTOMEGALOVIRUS IMMUNE GLOBULIN [Concomitant]
     Active Substance: HUMAN CYTOMEGALOVIRUS IMMUNE GLOBULIN
  4. VALGANCICLOVIR [Concomitant]
     Active Substance: VALGANCICLOVIR
  5. COTRIMOXAZOLE [Concomitant]
     Active Substance: SULFAMETHOXAZOLE\TRIMETHOPRIM
  6. FLUCONAZOLE [Concomitant]
     Active Substance: FLUCONAZOLE
  7. IRON [Concomitant]
     Active Substance: IRON
  8. CIPROFLOXACIN [Concomitant]
     Active Substance: CIPROFLOXACIN
  9. OMEPRAZOLE [Concomitant]
     Active Substance: OMEPRAZOLE
  10. ACYCLOVIR [Concomitant]
     Active Substance: ACYCLOVIR
  11. VORICONAZOLE [Concomitant]
     Active Substance: VORICONAZOLE
  12. Trimoxazole-bc [Concomitant]
  13. CEFOPERAZONE [Concomitant]
     Active Substance: CEFOPERAZONE
  14. SULBACTAM [Concomitant]
     Active Substance: SULBACTAM
  15. ALLOPURINOL [Concomitant]
     Active Substance: ALLOPURINOL
  16. ACETAMINOPHEN [Concomitant]
     Active Substance: ACETAMINOPHEN
  17. GANCICLOVIR [Concomitant]
     Active Substance: GANCICLOVIR

REACTIONS (15)
  - Febrile neutropenia [Unknown]
  - Bronchopulmonary aspergillosis [Unknown]
  - Pneumonia [Unknown]
  - Pancytopenia [Unknown]
  - Acute graft versus host disease in skin [Unknown]
  - Congenital cytomegalovirus infection [Unknown]
  - Thrombocytopenia [Unknown]
  - Neutropenia [Unknown]
  - Pneumonia streptococcal [Unknown]
  - Pneumonia fungal [Unknown]
  - Pneumonia cytomegaloviral [Unknown]
  - Anaemia [Unknown]
  - Gastrointestinal inflammation [Unknown]
  - Urinary tract infection [Unknown]
  - Asymptomatic bacteriuria [Unknown]
